FAERS Safety Report 23312685 (Version 2)
Quarter: 2024Q1

REPORT INFORMATION
  Report Type: Spontaneous
  Country: US (occurrence: US)
  Receive Date: 20231219
  Receipt Date: 20240229
  Transmission Date: 20240410
  Serious: Yes (Other)
  Sender: FDA-Public Use
  Company Number: US-TEVA-VS-3136297

PATIENT
  Age: 36 Year
  Sex: Female

DRUGS (1)
  1. LANTHANUM [Suspect]
     Active Substance: LANTHANUM
     Indication: End stage renal disease
     Route: 065
     Dates: start: 2017

REACTIONS (1)
  - Gastrointestinal disorder [Unknown]
